FAERS Safety Report 12145546 (Version 1)
Quarter: 2016Q1

REPORT INFORMATION
  Report Type: Spontaneous
  Country: US (occurrence: None)
  Receive Date: 20160303
  Receipt Date: 20160303
  Transmission Date: 20160526
  Serious: Yes (Hospitalization)
  Sender: FDA-Public Use
  Company Number: None

PATIENT
  Age: 87 Year
  Sex: Male

DRUGS (2)
  1. ZOLPIDEM [Suspect]
     Active Substance: ZOLPIDEM\ZOLPIDEM TARTRATE
     Indication: INSOMNIA
     Route: 048
     Dates: start: 20151202, end: 20160202
  2. ACETAMINOPHEN/HYDROCODONE [Suspect]
     Active Substance: ACETAMINOPHEN\HYDROCODONE
     Indication: PAIN
     Dosage: 325/5 MG PRN PO
     Route: 048
     Dates: start: 20160128, end: 20160202

REACTIONS (5)
  - Dehydration [None]
  - Mental status changes [None]
  - Confusional state [None]
  - Fall [None]
  - Consciousness fluctuating [None]

NARRATIVE: CASE EVENT DATE: 20160129
